FAERS Safety Report 8013949-8 (Version None)
Quarter: 2011Q4

REPORT INFORMATION
  Report Type: 
  Country: None (occurrence: None)
  Receive Date: 20111229
  Receipt Date: 20111221
  Transmission Date: 20120403
  Serious: Yes (Life-Threatening)
  Sender: FDA-Public Use
  Company Number: FR-ROCHE-1024234

PATIENT
  Sex: Female

DRUGS (14)
  1. PROGRAF [Suspect]
     Indication: IMMUNOSUPPRESSION
     Dates: start: 20111107, end: 20111116
  2. CYCLOSPORINE [Suspect]
     Dates: start: 20111116
  3. VFEND [Suspect]
     Indication: INFECTION
     Dates: start: 20111024
  4. ACETAMINOPHEN [Concomitant]
  5. EPREX [Suspect]
     Indication: ANAEMIA
     Dates: start: 20111024
  6. VALACYCLOVIR HYDROCHLORIDE [Concomitant]
  7. FOLINORAL [Concomitant]
  8. INVANZ [Suspect]
     Indication: INFECTION
     Dates: start: 20111110, end: 20111114
  9. PREDNISONE TAB [Concomitant]
  10. NEXIUM [Concomitant]
  11. CYCLOSPORINE [Suspect]
     Indication: IMMUNOSUPPRESSION
     Dates: start: 20111024, end: 20111109
  12. UMULINE [Concomitant]
  13. MYCOPHENOLATE MOFETIL (CELLCEPT) [Suspect]
     Indication: IMMUNOSUPPRESSION
     Dates: start: 20111024
  14. LASIX [Concomitant]

REACTIONS (1)
  - POSTERIOR REVERSIBLE ENCEPHALOPATHY SYNDROME [None]
